FAERS Safety Report 9376637 (Version 1)
Quarter: 2013Q3

REPORT INFORMATION
  Report Type: Spontaneous
  Country: US (occurrence: US)
  Receive Date: 20130701
  Receipt Date: 20130701
  Transmission Date: 20140515
  Serious: No
  Sender: FDA-Public Use
  Company Number: US-PFIZER INC-2013191774

PATIENT
  Age: 72 Year
  Sex: Male

DRUGS (12)
  1. SUTENT [Suspect]
     Indication: RENAL CANCER
     Dosage: 12.5 MG, UNK
     Dates: start: 20130422
  2. KLOR-CON [Concomitant]
     Dosage: UNK
  3. FUROSEMIDE [Concomitant]
     Dosage: UNK
  4. LASIX [Concomitant]
     Dosage: UNK
  5. LEVOTHYROXINE SODIUM [Concomitant]
     Dosage: UNK
  6. HYDROCHLOROTHIAZIDE/METOPROLOL [Concomitant]
     Dosage: UNK
  7. PERCOCET [Concomitant]
     Dosage: UNK
  8. POTASSIUM CHLORIDE [Concomitant]
     Dosage: UNK
  9. PROCHLORPERAZINE MALEATE [Concomitant]
     Dosage: UNK
  10. SIMVASTATIN [Concomitant]
     Dosage: UNK
  11. TRILIPIX [Concomitant]
     Dosage: UNK
  12. ZOFRAN [Concomitant]
     Dosage: UNK

REACTIONS (2)
  - Oedema peripheral [Unknown]
  - Hypertension [Unknown]
